FAERS Safety Report 7876137-1 (Version None)
Quarter: 2011Q4

REPORT INFORMATION
  Report Type: 
  Country: None (occurrence: None)
  Receive Date: 20111031
  Receipt Date: 20111025
  Transmission Date: 20120403
  Serious: Yes (Hospitalization)
  Sender: FDA-Public Use
  Company Number: US-JNJFOC-20111011855

PATIENT
  Sex: Male
  Weight: 104.33 kg

DRUGS (7)
  1. DIOVAN [Concomitant]
     Indication: PAIN
     Route: 048
  2. PERCOCET [Concomitant]
     Indication: PAIN
     Route: 048
  3. NUCYNTA [Suspect]
     Route: 048
     Dates: start: 20111001
  4. NUCYNTA [Suspect]
     Indication: PAIN
     Route: 048
  5. MUSCLE RELAXANTS (NOS) [Concomitant]
     Indication: MUSCLE SPASMS
     Route: 048
  6. CYMBALTA [Concomitant]
     Indication: DEPRESSION
     Route: 048
  7. SINGULAIR [Concomitant]
     Indication: MULTIPLE ALLERGIES
     Route: 048

REACTIONS (5)
  - FOAMING AT MOUTH [None]
  - WHITE BLOOD CELL COUNT INCREASED [None]
  - DRUG INEFFECTIVE [None]
  - UNRESPONSIVE TO STIMULI [None]
  - INTENTIONAL OVERDOSE [None]
